FAERS Safety Report 6879866-1 (Version None)
Quarter: 2010Q3

REPORT INFORMATION
  Report Type: 
  Country: None (occurrence: None)
  Receive Date: 20100728
  Receipt Date: 20060405
  Transmission Date: 20110219
  Serious: Yes (Hospitalization)
  Sender: FDA-Public Use
  Company Number: CA-ROCHE-716611

PATIENT
  Sex: Female
  Weight: 53.8 kg

DRUGS (8)
  1. TRASTUZUMAB [Suspect]
     Route: 042
     Dates: start: 20060322, end: 20060322
  2. DOCETAXEL [Suspect]
     Route: 042
     Dates: start: 20060323, end: 20060323
  3. CARBOPLATIN [Suspect]
     Route: 042
     Dates: start: 20060323, end: 20060323
  4. FLUOROURACIL [Suspect]
     Dosage: RECEIVED 4 CYCLES
     Route: 065
     Dates: start: 20051222, end: 20060224
  5. EPIRUBICIN [Suspect]
     Dosage: RECEIVED 4 CYCLES
     Route: 065
     Dates: start: 20051222, end: 20060224
  6. CYCLOPHOSPHAMIDE [Suspect]
     Dosage: RECEIVED 4 CYCLES
     Route: 065
     Dates: start: 20051222, end: 20060224
  7. DECADRON [Concomitant]
     Dosage: POST CHEMOTHERAPY
     Route: 048
     Dates: start: 20030206
  8. MAXERON [Concomitant]
     Indication: NAUSEA
     Dosage: 10 MG EVERY 6 HOUR AS NECESSARY
     Route: 048
     Dates: start: 20030206

REACTIONS (3)
  - CAECITIS [None]
  - NEUTROPENIA [None]
  - PYREXIA [None]
